FAERS Safety Report 7914839-9 (Version None)
Quarter: 2011Q4

REPORT INFORMATION
  Report Type: 
  Country: None (occurrence: None)
  Receive Date: 20111115
  Receipt Date: 20111107
  Transmission Date: 20120403
  Serious: Yes (Other)
  Sender: FDA-Public Use
  Company Number: IT-ELI_LILLY_AND_COMPANY-IT201111001687

PATIENT
  Sex: Male

DRUGS (2)
  1. ALIMTA [Suspect]
     Indication: LUNG ADENOCARCINOMA
     Dosage: 1000 MG, PER CYCLE
     Route: 042
     Dates: start: 20110119, end: 20110302
  2. CARBOPLATIN [Concomitant]
     Dosage: 570 MG, UNKNOWN
     Dates: start: 20110119, end: 20110302

REACTIONS (5)
  - THROMBOCYTOPENIA [None]
  - LIVER FUNCTION TEST ABNORMAL [None]
  - ANAEMIA [None]
  - NEUTROPENIA [None]
  - HAEMOLYTIC URAEMIC SYNDROME [None]
